FAERS Safety Report 9470124 (Version 1)
Quarter: 2013Q3

REPORT INFORMATION
  Report Type: Spontaneous
  Country: US (occurrence: US)
  Receive Date: 20130822
  Receipt Date: 20130822
  Transmission Date: 20140515
  Serious: No
  Sender: FDA-Public Use
  Company Number: US-ASTRAZENECA-2013SE51234

PATIENT
  Age: 70 Year
  Sex: Female

DRUGS (11)
  1. ARIMIDEX [Suspect]
     Route: 048
     Dates: start: 2012
  2. ASPIRIN [Concomitant]
  3. CALCIUM WITH VITAMIN D [Concomitant]
  4. FIBER [Concomitant]
  5. TRIAMTERENE AND HYDROCHLOROTHIAZIDE [Concomitant]
  6. SENOKOT [Concomitant]
  7. SALMON OIL [Concomitant]
  8. PANTOPRAZOLE [Concomitant]
  9. LEVOTHYROXINE [Concomitant]
  10. FLUOXETINE [Concomitant]
  11. CABALTALOL [Concomitant]

REACTIONS (2)
  - Palpitations [Not Recovered/Not Resolved]
  - Anxiety [Not Recovered/Not Resolved]
